FAERS Safety Report 9866779 (Version 2)
Quarter: 2014Q1

REPORT INFORMATION
  Report Type: Spontaneous
  Country: DE (occurrence: DE)
  Receive Date: 20140204
  Receipt Date: 20140210
  Transmission Date: 20141002
  Serious: Yes (Other)
  Sender: FDA-Public Use
  Company Number: DE-ROCHE-1341561

PATIENT
  Age: 49 Year
  Sex: Female
  Weight: 57 kg

DRUGS (3)
  1. MIRCERA [Suspect]
     Indication: NEPHROGENIC ANAEMIA
     Route: 058
     Dates: start: 20080703, end: 20131031
  2. MIRCERA [Suspect]
     Route: 058
     Dates: start: 20131220, end: 20140115
  3. MYCOPHENOLATE MOFETIL [Concomitant]
     Route: 065
     Dates: start: 20110802

REACTIONS (1)
  - Anaemia [Not Recovered/Not Resolved]
